FAERS Safety Report 14990590 (Version 1)
Quarter: 2018Q2

REPORT INFORMATION
  Report Type: Spontaneous
  Country: US (occurrence: US)
  Receive Date: 20180608
  Receipt Date: 20180608
  Transmission Date: 20180711
  Serious: No
  Sender: FDA-Public Use
  Company Number: US-ROCHE-2062218

PATIENT
  Sex: Male

DRUGS (17)
  1. CARVEDILOL. [Concomitant]
     Active Substance: CARVEDILOL
     Route: 065
  2. TAMSULOSIN HCL [Concomitant]
     Active Substance: TAMSULOSIN HYDROCHLORIDE
  3. ACTEMRA [Suspect]
     Active Substance: TOCILIZUMAB
     Indication: RHEUMATOID ARTHRITIS
     Dosage: 0.9ML
     Route: 058
  4. MORPHINE SULFATE. [Concomitant]
     Active Substance: MORPHINE SULFATE
  5. AVODART [Concomitant]
     Active Substance: DUTASTERIDE
  6. EPIPEN [Concomitant]
     Active Substance: EPINEPHRINE
  7. LANTUS SOLOSTAR [Concomitant]
     Active Substance: INSULIN GLARGINE
  8. OMEPRAZOLE. [Concomitant]
     Active Substance: OMEPRAZOLE
  9. VENTOLIN HFA [Concomitant]
     Active Substance: ALBUTEROL SULFATE
  10. AMOXICILLIN/CLAVULANATE POTASSIUM [Concomitant]
     Active Substance: AMOXICILLIN\CLAVULANATE POTASSIUM
  11. CARBAMAZEPINE CR [Concomitant]
  12. ORPHENADRINE CITRATE. [Concomitant]
     Active Substance: ORPHENADRINE CITRATE
  13. ZETIA [Concomitant]
     Active Substance: EZETIMIBE
  14. LYRICA [Concomitant]
     Active Substance: PREGABALIN
  15. WELCHOL [Concomitant]
     Active Substance: COLESEVELAM HYDROCHLORIDE
  16. LEVOFLOXACIN. [Concomitant]
     Active Substance: LEVOFLOXACIN
  17. AMITRIPTYLINE HCL [Concomitant]
     Active Substance: AMITRIPTYLINE

REACTIONS (2)
  - No adverse event [Unknown]
  - Drug ineffective [Unknown]
